FAERS Safety Report 6329329-7 (Version None)
Quarter: 2009Q3

REPORT INFORMATION
  Report Type: 
  Country: None (occurrence: None)
  Receive Date: 20090826
  Receipt Date: 20090819
  Transmission Date: 20100115
  Serious: Yes (Life-Threatening, Hospitalization, Disabling)
  Sender: FDA-Public Use
  Company Number: B0589238A

PATIENT
  Age: 58 Year
  Sex: Female
  Weight: 200 kg

DRUGS (6)
  1. ORLISTAT [Suspect]
     Indication: OVERWEIGHT
     Route: 048
     Dates: start: 20090601
  2. AMISULPRIDE [Concomitant]
  3. VENLAFAXINE HYDROCHLORIDE [Concomitant]
  4. LORAZEPAM [Concomitant]
  5. FOLIC ACID [Concomitant]
  6. FERROUS SULFATE TAB [Concomitant]

REACTIONS (3)
  - DEHYDRATION [None]
  - DIARRHOEA [None]
  - RENAL FAILURE ACUTE [None]
